FAERS Safety Report 24060801 (Version 1)
Quarter: 2024Q3

REPORT INFORMATION
  Report Type: Spontaneous
  Country: US (occurrence: None)
  Receive Date: 20240705
  Receipt Date: 20240705
  Transmission Date: 20241017
  Serious: No
  Sender: Public
  Company Number: None

PATIENT
  Age: 67 Year
  Sex: Female
  Weight: 88.45 kg

DRUGS (2)
  1. INFLECTRA [Suspect]
     Active Substance: INFLIXIMAB-DYYB
     Indication: Psoriatic arthropathy
     Dosage: FREQUENCY : AS DIRECTED;?INFUSE 440MG INTRAVENOUSLY AT WEEKS 0, 2 AND 6 AS DIRECTED,?
     Route: 042
     Dates: start: 202405
  2. INFLECTRA [Suspect]
     Active Substance: INFLIXIMAB-DYYB
     Indication: Psoriasis

REACTIONS (4)
  - Headache [None]
  - Head discomfort [None]
  - Photophobia [None]
  - Sinus headache [None]
